FAERS Safety Report 19289112 (Version 2)
Quarter: 2021Q2

REPORT INFORMATION
  Report Type: Spontaneous
  Country: JP (occurrence: JP)
  Receive Date: 20210521
  Receipt Date: 20210604
  Transmission Date: 20210717
  Serious: Yes (Other)
  Sender: FDA-Public Use
  Company Number: NVSC2021JP113531

PATIENT
  Age: 54 Year
  Sex: Male
  Weight: 54.9 kg

DRUGS (10)
  1. OXALIPLATIN. [Suspect]
     Active Substance: OXALIPLATIN
     Dosage: UNK UNK, CYCLIC
     Route: 042
  2. 5?FLUOROURACIL [Suspect]
     Active Substance: FLUOROURACIL
     Dosage: UNK, CYCLIC (THIRD CYCLE REDUCED BY 30 PERCENT)
     Route: 042
  3. LEUCOVORIN CALCIUM. [Suspect]
     Active Substance: LEUCOVORIN CALCIUM
     Dosage: UNK, CYCLIC (THIRD CYCLE REDUCED BY 30%)
     Route: 042
  4. OXALIPLATIN. [Suspect]
     Active Substance: OXALIPLATIN
     Indication: GASTRIC CANCER STAGE IV
     Dosage: 42.5 MG/M2, CYCLIC
     Route: 042
  5. 5?FLUOROURACIL [Suspect]
     Active Substance: FLUOROURACIL
     Indication: GASTRIC CANCER STAGE IV
     Dosage: 200 MG/M2, CYCLIC (TOTAL DOSE OF 323.8 MG)
     Route: 040
  6. 5?HYDROXYTRYPTAMINE [Concomitant]
     Indication: PROPHYLAXIS OF NAUSEA AND VOMITING
     Dosage: UNK
     Route: 065
  7. OXALIPLATIN. [Suspect]
     Active Substance: OXALIPLATIN
     Dosage: UNK UNK, CYCLIC
     Route: 042
  8. 5?FLUOROURACIL [Suspect]
     Active Substance: FLUOROURACIL
     Dosage: UNK, CYCLIC (SECOND CYCLE REDUCED BY 30 PERCENT)
     Route: 042
  9. LEUCOVORIN CALCIUM. [Suspect]
     Active Substance: LEUCOVORIN CALCIUM
     Indication: GASTRIC CANCER STAGE IV
     Dosage: 200 MG/M2, CYCLIC (200 MG/M2 REDUCED FROM TOTAL DOSE OF 323.8 MG)
     Route: 042
  10. 5?FLUOROURACIL [Suspect]
     Active Substance: FLUOROURACIL
     Dosage: 1200 MG/M2, CYCLIC (REDUCED SUSTAINED DOSE TOTAL DOSE 1942.6 MG OF OVER 46 HRS)
     Route: 040

REACTIONS (1)
  - Thrombocytopenia [Recovered/Resolved]
